FAERS Safety Report 5045448-X (Version None)
Quarter: 2006Q3

REPORT INFORMATION
  Report Type: 
  Country: None (occurrence: None)
  Receive Date: 20060707
  Receipt Date: 20060705
  Transmission Date: 20061208
  Serious: Yes (Death)
  Sender: FDA-Public Use
  Company Number: PHEH2006US08594

PATIENT
  Age: 86 Year
  Sex: Male

DRUGS (1)
  1. EXJADE [Suspect]
     Indication: BLOOD IRON INCREASED
     Dosage: 1250 MG, QD
     Route: 048
     Dates: start: 20060612

REACTIONS (1)
  - DEATH [None]
